FAERS Safety Report 8191313 (Version 2)
Quarter: 2012Q4

REPORT INFORMATION
  Report Type: 
  Country: DE (occurrence: DE)
  Receive Date: 20111020
  Receipt Date: 20121023
  Transmission Date: 20130627
  Serious: Yes (Hospitalization)
  Sender: FDA-Public Use
  Company Number: DE-EISAI INC-E7389-01625-SPO-DE

PATIENT
  Age: 67 Year
  Sex: Female

DRUGS (4)
  1. HALAVEN [Suspect]
     Indication: METASTATIC BREAST CANCER
     Dosage: UNKNOWN
     Route: 042
  2. ACICLOVIR [Concomitant]
  3. FLUCONAZOLE [Concomitant]
  4. MORPHINE [Concomitant]

REACTIONS (4)
  - Febrile bone marrow aplasia [Recovered/Resolved]
  - Mucosal inflammation [Recovered/Resolved]
  - Neutropenia [Recovered/Resolved]
  - Dysphonia [Unknown]
